FAERS Safety Report 21595410 (Version 1)
Quarter: 2022Q4

REPORT INFORMATION
  Report Type: Spontaneous
  Country: BR (occurrence: BR)
  Receive Date: 20221115
  Receipt Date: 20221115
  Transmission Date: 20230113
  Serious: Yes (Hospitalization)
  Sender: FDA-Public Use
  Company Number: BR-SA-SAC20221108000598

PATIENT
  Age: 37 Year
  Sex: Female
  Weight: 80 kg

DRUGS (6)
  1. ENOXAPARIN SODIUM [Suspect]
     Active Substance: ENOXAPARIN SODIUM
     Indication: Hypercoagulation
     Dosage: 1 DF, QD (1 APPLICATION A DAY) STRENGTH 40 MG
     Dates: start: 202204
  2. PREDNISONE [Concomitant]
     Active Substance: PREDNISONE
     Indication: Hypersensitivity
     Dosage: 1 DF, QD
  3. VITAMIN B COMPLEX [Concomitant]
     Active Substance: CYANOCOBALAMIN\DEXPANTHENOL\NIACINAMIDE\PYRIDOXINE HYDROCHLORIDE\RIBOFLAVIN 5^-PHOSPHATE SODIUM\THIA
     Dosage: 1 TABLET EVERY 15 DAYS
  4. FISH OIL [Concomitant]
     Active Substance: FISH OIL
     Dosage: 1 DF, QD (1 TABLET A DAY)
  5. PURAN [Concomitant]
     Active Substance: LEVOTHYROXINE SODIUM
     Indication: Hyperthyroidism
     Dosage: 1 TABLET A DAY
  6. ASPIRIN [Concomitant]
     Active Substance: ASPIRIN
     Indication: Anticoagulant therapy
     Dosage: 2 TABLETS A DAY

REACTIONS (2)
  - Labour complication [Recovering/Resolving]
  - Exposure during pregnancy [Recovering/Resolving]

NARRATIVE: CASE EVENT DATE: 20220101
